FAERS Safety Report 7640668-X (Version None)
Quarter: 2011Q3

REPORT INFORMATION
  Report Type: 
  Country: None (occurrence: None)
  Receive Date: 20110721
  Receipt Date: 20110706
  Transmission Date: 20111222
  Serious: Yes (Other)
  Sender: FDA-Public Use
  Company Number: 2011MA008699

PATIENT
  Age: 61 Year
  Sex: Female

DRUGS (10)
  1. TRAMADOL HYDROCHLORIDE [Suspect]
     Dosage: 8 DF;QD;
  2. FEVERALL [Suspect]
     Dosage: 8 DF;QD;
  3. MISOPROSTOL [Suspect]
     Dosage: 500 MG;BID;
  4. OXYBUTYNIN [Concomitant]
  5. SERETIDE DISKUS [Concomitant]
  6. NAPROXEN [Suspect]
     Dosage: 500 MG;BID;
  7. LANSOPRAZOLE [Concomitant]
  8. VENTOLIN HFA [Concomitant]
  9. CITALOPRAM HYDROBROMIDE [Concomitant]
  10. DICLOFENAC SODIUM [Concomitant]

REACTIONS (9)
  - OEDEMA PERIPHERAL [None]
  - OSTEOARTHRITIS [None]
  - REFUSAL OF TREATMENT BY PATIENT [None]
  - RHEUMATOID ARTHRITIS [None]
  - ASTHMA [None]
  - CONDITION AGGRAVATED [None]
  - MOBILITY DECREASED [None]
  - IDIOPATHIC THROMBOCYTOPENIC PURPURA [None]
  - IMPAIRED SELF-CARE [None]
